FAERS Safety Report 19227396 (Version 3)
Quarter: 2021Q2

REPORT INFORMATION
  Report Type: Spontaneous
  Country: US (occurrence: US)
  Receive Date: 20210507
  Receipt Date: 20210519
  Transmission Date: 20210717
  Serious: No
  Sender: FDA-Public Use
  Company Number: US-SA-2021SA146267

PATIENT
  Sex: Male

DRUGS (2)
  1. DUPIXENT [Suspect]
     Active Substance: DUPILUMAB
     Dosage: 300 MG, QOW
     Route: 058
  2. DUPIXENT [Suspect]
     Active Substance: DUPILUMAB
     Indication: ECZEMA
     Dosage: UNK (LOADING DOSE)
     Route: 058
     Dates: start: 201912, end: 201912

REACTIONS (5)
  - Product dose omission issue [Unknown]
  - Rebound eczema [Recovered/Resolved]
  - Skin ulcer [Recovered/Resolved]
  - Skin exfoliation [Recovered/Resolved]
  - Scab [Recovered/Resolved]
